FAERS Safety Report 7012125-5 (Version None)
Quarter: 2010Q3

REPORT INFORMATION
  Report Type: 
  Country: None (occurrence: None)
  Receive Date: 20100924
  Receipt Date: 20100920
  Transmission Date: 20110219
  Serious: Yes (Life-Threatening, Hospitalization, Other)
  Sender: FDA-Public Use
  Company Number: AU-ASTRAZENECA-2009SE22513

PATIENT
  Age: 0 Day
  Sex: Male
  Weight: 4 kg

DRUGS (2)
  1. SEROQUEL XR [Suspect]
     Indication: PSYCHOTIC DISORDER
     Route: 064
  2. FOLATE [Concomitant]
     Indication: PROPHYLAXIS
     Route: 048

REACTIONS (3)
  - DRUG WITHDRAWAL SYNDROME NEONATAL [None]
  - JAUNDICE [None]
  - POLYCYTHAEMIA [None]
